FAERS Safety Report 8435153-1 (Version None)
Quarter: 2012Q2

REPORT INFORMATION
  Report Type: 
  Country: None (occurrence: None)
  Receive Date: 20120614
  Receipt Date: 20120606
  Transmission Date: 20120825
  Serious: Yes (Hospitalization)
  Sender: FDA-Public Use
  Company Number: US-BAYER-2012-057447

PATIENT
  Age: 40 Year
  Sex: Female
  Weight: 61.678 kg

DRUGS (16)
  1. DESYREL [Concomitant]
     Dosage: 150 MG TABLET DAILY AT BEDTIME
     Route: 048
  2. CELEBREX [Concomitant]
     Dosage: 200 MG, UNK
     Route: 048
  3. CYMBALTA [Concomitant]
     Dosage: 30 MG, UNK
  4. MULTI-VITAMIN [Concomitant]
     Dosage: 1 TABLET DAILY, UNK
     Route: 048
  5. OXYMORPHONE HYDROCHLORIDE [Concomitant]
     Dosage: 30 MG, 2 TIMES DAILY
     Route: 048
  6. OXYCONTIN [Concomitant]
     Dosage: 30 MG TABLET EVERY 12 HOURS
     Route: 048
  7. PHENERGAN [Concomitant]
     Dosage: 12.5 MG/0.1 ML ,APPLY TO AFFECTED AREA, EVERY 4 HOURS
     Route: 061
  8. WELLBUTRIN XL [Concomitant]
     Dosage: 300 MG, UNK
     Route: 048
  9. YAZ [Suspect]
     Indication: OVARIAN CYST
     Dosage: UNK
  10. LIORESAL [Concomitant]
     Dosage: 10 MG, 3 TIMES DAILY, AS NEEDED
     Route: 048
  11. BISMUTH SUBSALICYLATE [Concomitant]
     Dosage: 262 MG, UNK
     Route: 048
  12. VALIUM [Concomitant]
     Dosage: 5 MG,EVERY 6 HOURS, AS NEEDED
     Route: 048
  13. RESTORIL [Concomitant]
     Dosage: 30 MG CAPSULE NIGHTLY AS NEEDED
     Route: 048
  14. BACLOFEN [Concomitant]
     Dosage: UNK
  15. MORPHINE [Concomitant]
     Dosage: 15 MG TABLET EVERY 4 HOURS AS NEEDED
     Route: 048
  16. MELOXICAM [Concomitant]
     Dosage: 15 MG, UNK

REACTIONS (2)
  - PULMONARY INFARCTION [None]
  - PULMONARY EMBOLISM [None]
